FAERS Safety Report 8884694 (Version 2)
Quarter: 2012Q4

REPORT INFORMATION
  Report Type: 
  Country: US (occurrence: US)
  Receive Date: 20121102
  Receipt Date: 20121120
  Transmission Date: 20130627
  Serious: Yes (Hospitalization)
  Sender: FDA-Public Use
  Company Number: US-FRI-1000039972

PATIENT
  Age: 59 None
  Sex: Male

DRUGS (3)
  1. DALIRESP [Suspect]
     Indication: CHRONIC OBSTRUCTIVE PULMONARY DISEASE
     Dosage: 500 mcg
     Dates: start: 201202, end: 2012
  2. DALIRESP [Suspect]
     Indication: CHRONIC OBSTRUCTIVE PULMONARY DISEASE
     Dosage: 500 mcg
     Dates: start: 2012, end: 2012
  3. DALIRESP [Suspect]
     Indication: CHRONIC OBSTRUCTIVE PULMONARY DISEASE
     Dosage: 500 mcg
     Dates: start: 201210, end: 20121026

REACTIONS (3)
  - Ventricular tachycardia [Unknown]
  - Palpitations [Recovered/Resolved]
  - Hot flush [Recovered/Resolved]
